FAERS Safety Report 9616384 (Version 1)
Quarter: 2013Q4

REPORT INFORMATION
  Report Type: Report from Study
  Country: ES (occurrence: ES)
  Receive Date: 20131011
  Receipt Date: 20131011
  Transmission Date: 20140711
  Serious: No
  Sender: FDA-Public Use
  Company Number: ES-SA-2013SA100806

PATIENT
  Age: 72 Year
  Sex: Male
  Weight: 77 kg

DRUGS (6)
  1. DRONEDARONE [Suspect]
     Indication: ATRIAL FIBRILLATION
     Route: 065
     Dates: start: 20130405
  2. VALSARTAN [Concomitant]
     Indication: HYPERTENSION
     Dates: start: 20100512
  3. TAMSULOSIN [Concomitant]
     Indication: BENIGN PROSTATIC HYPERPLASIA
     Dates: start: 20110715
  4. METFORMIN [Concomitant]
     Indication: DIABETES MELLITUS
     Dates: start: 20091230
  5. AAS [Concomitant]
     Dates: start: 20070715
  6. RIVAROXABAN [Concomitant]
     Indication: ATRIAL FIBRILLATION
     Dates: start: 20130717

REACTIONS (1)
  - Renal failure [Recovered/Resolved]
